FAERS Safety Report 7098596-7 (Version None)
Quarter: 2010Q4

REPORT INFORMATION
  Report Type: 
  Country: None (occurrence: None)
  Receive Date: 20101112
  Receipt Date: 20090821
  Transmission Date: 20110411
  Serious: No
  Sender: FDA-Public Use
  Company Number: US-KINGPHARMUSA00001-K200901031

PATIENT
  Age: 44 Year
  Sex: Male
  Weight: 68.027 kg

DRUGS (1)
  1. SKELAXIN [Suspect]
     Indication: MUSCLE RELAXANT THERAPY
     Dosage: 800 MG, TID
     Route: 048
     Dates: start: 20090820, end: 20090820

REACTIONS (2)
  - DEPRESSION [None]
  - DRUG INEFFECTIVE [None]
